FAERS Safety Report 6655717-5 (Version None)
Quarter: 2010Q1

REPORT INFORMATION
  Report Type: 
  Country: None (occurrence: None)
  Receive Date: 20100317
  Receipt Date: 20100126
  Transmission Date: 20100710
  Serious: No
  Sender: FDA-Public Use
  Company Number: DSA_42494_2010

PATIENT
  Sex: Female

DRUGS (4)
  1. XENAZINE [Suspect]
     Indication: HUNTINGTON'S CHOREA
     Dosage: 12.5 MG TID ORAL
     Route: 048
     Dates: start: 20090401, end: 20091001
  2. IMITREX [Concomitant]
  3. PHENERGAN [Concomitant]
  4. QUANAPIN [Concomitant]

REACTIONS (5)
  - DEPRESSION [None]
  - DYSGRAPHIA [None]
  - MOVEMENT DISORDER [None]
  - PARKINSONISM [None]
  - SPEECH DISORDER [None]
